FAERS Safety Report 5225858-8 (Version None)
Quarter: 2007Q1

REPORT INFORMATION
  Report Type: 
  Country: None (occurrence: None)
  Receive Date: 20070130
  Receipt Date: 20070130
  Transmission Date: 20070707
  Serious: No
  Sender: FDA-Public Use
  Company Number: None

PATIENT
  Sex: Female
  Weight: 48.53 kg

DRUGS (6)
  1. TOPOTECAN [Suspect]
     Dosage: 3.3 MG
  2. ONDANSETRON [Concomitant]
  3. PROCHLOROPERAZINE [Concomitant]
  4. FENTANYL TRANSDERMAL SYSTEM [Concomitant]
  5. MORPHINE [Concomitant]
  6. MORPHINE [Concomitant]

REACTIONS (1)
  - NEUTROPENIA [None]
